FAERS Safety Report 24228874 (Version 1)
Quarter: 2024Q3

REPORT INFORMATION
  Report Type: Spontaneous
  Country: DE (occurrence: DE)
  Receive Date: 20240820
  Receipt Date: 20240820
  Transmission Date: 20241017
  Serious: Yes (Other)
  Sender: VERTEX
  Company Number: DE-EMBRYOTOX-202302242

PATIENT
  Age: 39 Year
  Sex: Female
  Weight: 49 kg

DRUGS (11)
  1. ELEXACAFTOR\IVACAFTOR\TEZACAFTOR [Suspect]
     Active Substance: ELEXACAFTOR\IVACAFTOR\TEZACAFTOR
     Indication: Cystic fibrosis
     Dosage: ONE TABLET DAILY (75 MG IVA/ 50 MG TEZA/ 100MG ELEXA) THEN PAUSE GW 4+3
     Route: 048
     Dates: start: 20230130, end: 2023
  2. ELEXACAFTOR\IVACAFTOR\TEZACAFTOR [Suspect]
     Active Substance: ELEXACAFTOR\IVACAFTOR\TEZACAFTOR
     Dosage: TWO TABLET DAILY (75 MG IVA/ 50 MG TEZA/ 100MG ELEXA) UNTIL GW 22
     Route: 048
     Dates: start: 2023, end: 2023
  3. ELEXACAFTOR\IVACAFTOR\TEZACAFTOR [Suspect]
     Active Substance: ELEXACAFTOR\IVACAFTOR\TEZACAFTOR
     Dosage: UNK
     Route: 048
     Dates: start: 2023, end: 20231008
  4. ALBUTEROL [Concomitant]
     Active Substance: ALBUTEROL
     Indication: Cystic fibrosis
     Dosage: 11 [TRPF./D ]
     Dates: start: 20230130, end: 20231008
  5. BOOSTRIX [Concomitant]
     Active Substance: TETANUS TOXOID, REDUCED DIPHTHERIA TOXOID AND ACELLULAR PERTUSSIS VACCINE, ADSORBED ANTIGENS
     Indication: Immunisation
     Route: 030
     Dates: start: 20230921, end: 20230921
  6. CIMZIA [Concomitant]
     Active Substance: CERTOLIZUMAB PEGOL
     Indication: Rheumatoid arthritis
     Dosage: 200 [MG/D (ALLE 2 WOCHEN) ]/ EVERY 2 WEEKS
     Route: 058
     Dates: start: 20230130, end: 20230304
  7. PANCRELIPASE [Concomitant]
     Active Substance: PANCRELIPASE\PANCRELIPASE AMYLASE\PANCRELIPASE LIPASE\PANCRELIPASE PROTEASE
     Indication: Cystic fibrosis
     Dosage: 375000 [E./D ]/ 12-15 TABLETS/D = 300,000 - 375,000 UNITS/D
     Route: 048
     Dates: start: 20230130, end: 20231008
  8. MUCOCLEAR [Concomitant]
     Indication: Cystic fibrosis
     Dosage: MORNING + EVENING: 4 ML 6% AND 2.5 ML 0.9%
     Dates: start: 20230130, end: 20231008
  9. ACTRAPID [Concomitant]
     Active Substance: INSULIN HUMAN
     Indication: Gestational diabetes
     Dosage: TAKEN AS NEEDED
     Route: 058
     Dates: start: 20230710, end: 20231008
  10. CEFUROXIME [Concomitant]
     Active Substance: CEFUROXIME
     Indication: Infection
     Dosage: 1000 [MG/D]
     Route: 048
     Dates: start: 20230722, end: 20230805
  11. FEMIBION [Concomitant]
     Indication: Prophylaxis of neural tube defect
     Dosage: 0.8 MG/D
     Route: 048

REACTIONS (3)
  - Premature rupture of membranes [Unknown]
  - Gestational diabetes [Unknown]
  - Exposure during pregnancy [Unknown]
